FAERS Safety Report 9712150 (Version 1)
Quarter: 2013Q4

REPORT INFORMATION
  Report Type: Spontaneous
  Country: CA (occurrence: CA)
  Receive Date: 20131126
  Receipt Date: 20131126
  Transmission Date: 20140711
  Serious: Yes (Life-Threatening, Hospitalization)
  Sender: FDA-Public Use
  Company Number: CA-B.I. PHARMACEUTICALS,INC./RIDGEFIELD-2013-BI-38942CN

PATIENT
  Age: 83 Year
  Sex: Female
  Weight: 61.23 kg

DRUGS (7)
  1. PRADAX [Suspect]
     Dosage: 150 MG
     Route: 048
  2. CRESTOR [Concomitant]
  3. MYLAN-WARFARIN [Concomitant]
  4. RAN-RAMIPRIL [Concomitant]
  5. SYNTHROID [Concomitant]
  6. TEVA-RABEPRAZOLE EC [Concomitant]
  7. TOBRADEX OPHTHALMIC [Concomitant]

REACTIONS (3)
  - Transient ischaemic attack [Recovered/Resolved]
  - Diarrhoea [Recovered/Resolved]
  - Pruritus [Recovered/Resolved]
